FAERS Safety Report 9203114 (Version 1)
Quarter: 2013Q2

REPORT INFORMATION
  Report Type: Spontaneous
  Country: US (occurrence: US)
  Receive Date: 20130402
  Receipt Date: 20130402
  Transmission Date: 20140414
  Serious: No
  Sender: FDA-Public Use
  Company Number: US-009507513-1304USA000480

PATIENT
  Age: 41 Year
  Sex: Female

DRUGS (7)
  1. EMEND [Suspect]
     Indication: PROPHYLAXIS OF NAUSEA AND VOMITING
     Dosage: 125 MG ON DAY 1, UNK
     Route: 048
     Dates: start: 20130314
  2. EMEND [Suspect]
     Dosage: 80 MG ON DAY 2, UNK
     Route: 048
     Dates: start: 20130315
  3. EMEND [Suspect]
     Dosage: 80 MG ON DAY 3, UNK
     Route: 048
     Dates: start: 20130316
  4. DECADRON [Concomitant]
  5. ADRIAMYCIN RDF [Concomitant]
  6. ALOXI [Concomitant]
  7. CYTOXAN [Concomitant]

REACTIONS (2)
  - Drug ineffective [Unknown]
  - Vomiting [Not Recovered/Not Resolved]
